FAERS Safety Report 19955692 (Version 2)
Quarter: 2021Q4

REPORT INFORMATION
  Report Type: Report from Study
  Country: CA (occurrence: CA)
  Receive Date: 20211014
  Receipt Date: 20211117
  Transmission Date: 20220304
  Serious: Yes (Death, Hospitalization)
  Sender: FDA-Public Use
  Company Number: CA-NOVARTISPH-NVSC2021CA234977

PATIENT
  Age: 82 Year
  Sex: Male
  Weight: 52.9 kg

DRUGS (8)
  1. CLOFAZIMINE [Suspect]
     Active Substance: CLOFAZIMINE
     Indication: Mycobacterium avium complex infection
     Dosage: 100 MG
     Route: 048
     Dates: start: 20201221, end: 20210303
  2. CEFTRIAXONE [Concomitant]
     Active Substance: CEFTRIAXONE
     Indication: Product used for unknown indication
     Dosage: UNK
     Route: 065
  3. AMIKACIN [Concomitant]
     Active Substance: AMIKACIN
     Indication: Mycobacterium avium complex infection
     Dosage: 376 MG, QD
     Route: 042
     Dates: start: 20201020
  4. AZITHROMYCIN [Concomitant]
     Active Substance: AZITHROMYCIN
     Indication: Mycobacterium avium complex infection
     Dosage: 250 MG, QD
     Route: 048
     Dates: start: 20201020
  5. RIFAMPIN [Concomitant]
     Active Substance: RIFAMPIN
     Indication: Mycobacterium avium complex infection
     Dosage: 300, QD
     Route: 048
     Dates: start: 20201020
  6. BISOPROLOL [Concomitant]
     Active Substance: BISOPROLOL
     Indication: Mycobacterium avium complex infection
     Dosage: 10 MG, QD
     Route: 065
     Dates: start: 20201020
  7. LEVOTHYROXINE [Concomitant]
     Active Substance: LEVOTHYROXINE
     Indication: Hypothyroidism
     Dosage: 125 UG, QD
     Route: 048
  8. MIRTAZAPINE [Concomitant]
     Active Substance: MIRTAZAPINE
     Indication: Depression
     Dosage: 7.5 MG, QD AT BED TIME
     Route: 048
     Dates: start: 20201203

REACTIONS (3)
  - Atrial fibrillation [Fatal]
  - Heart rate irregular [Unknown]
  - Dyspnoea [Unknown]

NARRATIVE: CASE EVENT DATE: 20190914
